FAERS Safety Report 8203411 (Version 5)
Quarter: 2014Q3

REPORT INFORMATION
  Report Type: Spontaneous
  Country: US (occurrence: US)
  Receive Date: 20111027
  Receipt Date: 20140911
  Transmission Date: 20150326
  Serious: Yes (Other)
  Sender: FDA-Public Use
  Company Number: US-ROCHE-1006924

PATIENT
  Sex: Female
  Weight: 68.1 kg

DRUGS (2)
  1. ACCUTANE [Suspect]
     Active Substance: ISOTRETINOIN
     Indication: ACNE
     Route: 048
     Dates: start: 20011203
  2. ACCUTANE [Suspect]
     Active Substance: ISOTRETINOIN
     Route: 048
     Dates: start: 20020108, end: 20020502

REACTIONS (12)
  - Rash [Unknown]
  - Emotional distress [Unknown]
  - Ataxia [Unknown]
  - Colitis ulcerative [Unknown]
  - Skin discolouration [Unknown]
  - Inflammatory bowel disease [Unknown]
  - Intestinal haemorrhage [Unknown]
  - Haemorrhoids [Unknown]
  - Dry skin [Unknown]
  - Hyperkeratosis [Unknown]
  - Proctitis [Unknown]
  - Irritable bowel syndrome [Unknown]

NARRATIVE: CASE EVENT DATE: 2002
